FAERS Safety Report 9735757 (Version 1)
Quarter: 2013Q4

REPORT INFORMATION
  Report Type: Spontaneous
  Country: US (occurrence: US)
  Receive Date: 20131206
  Receipt Date: 20131206
  Transmission Date: 20140711
  Serious: No
  Sender: FDA-Public Use
  Company Number: US-GILEAD-2009-0022941

PATIENT
  Sex: Female
  Weight: 46.72 kg

DRUGS (18)
  1. LETAIRIS [Suspect]
     Indication: PULMONARY ARTERIAL HYPERTENSION
     Route: 048
     Dates: start: 20090605
  2. OXYGEN [Concomitant]
  3. REVATIO [Concomitant]
  4. FUROSEMIDE [Concomitant]
  5. TRIAMTERENE-HCTZ [Concomitant]
  6. PRAVASTATIN SODIUM [Concomitant]
  7. ALENDRONATE SODIUM [Concomitant]
  8. SYMBICORT [Concomitant]
  9. SPIRIVA [Concomitant]
  10. SYMBYAX [Concomitant]
  11. XOPENEX [Concomitant]
  12. OXYBUTYNIN [Concomitant]
  13. ASPIRIN [Concomitant]
  14. NEXIUM [Concomitant]
  15. LCAPS [Concomitant]
  16. VITAMIN D [Concomitant]
  17. VITAMIN C [Concomitant]
  18. VITAMIN B12 [Concomitant]

REACTIONS (1)
  - Oedema [Unknown]
